FAERS Safety Report 10050501 (Version 2)
Quarter: 2014Q2

REPORT INFORMATION
  Report Type: Spontaneous
  Country: JP (occurrence: JP)
  Receive Date: 20140401
  Receipt Date: 20140415
  Transmission Date: 20141212
  Serious: No
  Sender: FDA-Public Use
  Company Number: JP-JNJFOC-20140317845

PATIENT
  Age: 40 Year
  Sex: Female
  Weight: 45 kg

DRUGS (12)
  1. REMICADE [Suspect]
     Indication: PUSTULAR PSORIASIS
     Route: 042
     Dates: start: 20131217
  2. REMICADE [Suspect]
     Indication: PUSTULAR PSORIASIS
     Route: 042
     Dates: start: 20140114
  3. REMICADE [Suspect]
     Indication: PUSTULAR PSORIASIS
     Route: 042
     Dates: start: 20140311
  4. REMICADE [Suspect]
     Indication: PUSTULAR PSORIASIS
     Route: 042
     Dates: end: 20140320
  5. REMICADE [Suspect]
     Indication: PUSTULAR PSORIASIS
     Route: 042
     Dates: start: 20131203
  6. LOXONIN [Concomitant]
     Indication: ARTHRALGIA
     Route: 048
     Dates: start: 20131017
  7. LOXONIN [Concomitant]
     Indication: ARTHRALGIA
     Route: 048
  8. MUCOSTA [Concomitant]
     Route: 048
     Dates: start: 20131017
  9. MUCOSTA [Concomitant]
     Route: 048
  10. MYSLEE [Concomitant]
     Indication: INSOMNIA
     Route: 048
     Dates: start: 20131128
  11. TALION [Concomitant]
     Indication: RHINITIS ALLERGIC
     Route: 048
     Dates: start: 20131203
  12. CHLOR-TRIMETON [Concomitant]
     Indication: PROPHYLAXIS
     Route: 065
     Dates: start: 20140114, end: 20140311

REACTIONS (4)
  - Off label use [Unknown]
  - Lymphocyte morphology abnormal [Not Recovered/Not Resolved]
  - Neutropenia [Recovered/Resolved]
  - Blast cells present [Recovered/Resolved]
